FAERS Safety Report 24823394 (Version 1)
Quarter: 2025Q1

REPORT INFORMATION
  Report Type: Spontaneous
  Country: AU (occurrence: AU)
  Receive Date: 20250109
  Receipt Date: 20250109
  Transmission Date: 20250409
  Serious: Yes (Other)
  Sender: CHEPLAPHARM
  Company Number: AU-CHEPLA-2025000137

PATIENT
  Sex: Male

DRUGS (1)
  1. OLANZAPINE [Suspect]
     Active Substance: OLANZAPINE
     Route: 048
     Dates: start: 1996, end: 2002

REACTIONS (5)
  - Myocardial ischaemia [Unknown]
  - Coronary artery disease [Unknown]
  - Weight increased [Unknown]
  - Dyskinesia [Unknown]
  - Neuralgia [Unknown]
